FAERS Safety Report 15234872 (Version 2)
Quarter: 2018Q3

REPORT INFORMATION
  Report Type: Spontaneous
  Country: CH (occurrence: CH)
  Receive Date: 20180803
  Receipt Date: 20180918
  Transmission Date: 20181010
  Serious: Yes (Hospitalization)
  Sender: FDA-Public Use
  Company Number: CH-ROCHE-2162207

PATIENT
  Age: 26 Year
  Sex: Female

DRUGS (25)
  1. MABTHERA [Suspect]
     Active Substance: RITUXIMAB
     Route: 042
     Dates: start: 20170921, end: 20170921
  2. ENDOXAN [Suspect]
     Active Substance: CYCLOPHOSPHAMIDE
     Indication: LYMPHOCYTIC LEUKAEMIA
     Route: 042
     Dates: start: 20170904, end: 20170904
  3. ENDOXAN [Suspect]
     Active Substance: CYCLOPHOSPHAMIDE
     Route: 042
     Dates: start: 20170918, end: 20170918
  4. DAUNOBLASTIN [Suspect]
     Active Substance: DAUNORUBICIN HYDROCHLORIDE
     Route: 042
     Dates: start: 20170918, end: 20170919
  5. METHOTREXATE. [Suspect]
     Active Substance: METHOTREXATE
     Route: 037
     Dates: start: 20170904, end: 20170904
  6. CYTOSAR [Suspect]
     Active Substance: CYTARABINE
     Route: 037
     Dates: start: 20170912, end: 20170912
  7. VINCRISTIN [Suspect]
     Active Substance: VINCRISTINE
     Route: 042
     Dates: start: 20170911, end: 20170911
  8. VINCRISTIN [Suspect]
     Active Substance: VINCRISTINE
     Route: 042
     Dates: start: 20170918, end: 20170918
  9. MABTHERA [Suspect]
     Active Substance: RITUXIMAB
     Route: 042
     Dates: start: 20170912, end: 20170912
  10. UROMITEXAN [Suspect]
     Active Substance: MESNA
     Route: 042
     Dates: start: 20170918, end: 20170918
  11. SOLU?MEDROL [Concomitant]
     Active Substance: METHYLPREDNISOLONE SODIUM SUCCINATE
     Indication: LYMPHOCYTIC LEUKAEMIA
     Route: 037
     Dates: start: 20170912
  12. ASPARAGINASE [Suspect]
     Active Substance: ASPARAGINASE
     Indication: LYMPHOCYTIC LEUKAEMIA
     Route: 065
     Dates: start: 20170918, end: 20170918
  13. UROMITEXAN [Suspect]
     Active Substance: MESNA
     Indication: LYMPHOCYTIC LEUKAEMIA
     Route: 042
     Dates: start: 20170904, end: 20170904
  14. METHOTREXATE. [Suspect]
     Active Substance: METHOTREXATE
     Route: 037
     Dates: start: 20170912, end: 20170912
  15. MABTHERA [Suspect]
     Active Substance: RITUXIMAB
     Indication: LYMPHOCYTIC LEUKAEMIA
     Route: 042
     Dates: start: 20170831, end: 20170831
  16. VINCRISTIN [Suspect]
     Active Substance: VINCRISTINE
     Indication: LYMPHOCYTIC LEUKAEMIA
     Route: 042
     Dates: start: 20170904, end: 20170904
  17. ASPARAGINASE [Suspect]
     Active Substance: ASPARAGINASE
     Route: 065
     Dates: start: 20170925, end: 20170925
  18. ASPARAGINASE [Suspect]
     Active Substance: ASPARAGINASE
     Route: 065
     Dates: start: 20170927, end: 20170927
  19. CYTOSAR [Suspect]
     Active Substance: CYTARABINE
     Indication: LYMPHOCYTIC LEUKAEMIA
     Route: 037
     Dates: start: 20170904, end: 20170904
  20. MABTHERA [Suspect]
     Active Substance: RITUXIMAB
     Route: 042
     Dates: start: 20170905, end: 20170905
  21. ASPARAGINASE [Suspect]
     Active Substance: ASPARAGINASE
     Route: 065
     Dates: start: 20170923, end: 20170923
  22. METHOTREXATE. [Suspect]
     Active Substance: METHOTREXATE
     Indication: LYMPHOCYTIC LEUKAEMIA
     Route: 037
     Dates: start: 20170830, end: 20170830
  23. DAUNOBLASTIN [Suspect]
     Active Substance: DAUNORUBICIN HYDROCHLORIDE
     Indication: LYMPHOCYTIC LEUKAEMIA
     Route: 042
     Dates: start: 20170904, end: 20170906
  24. SPIRICORT [Concomitant]
     Active Substance: PREDNISOLONE
     Route: 048
     Dates: start: 20170828, end: 20170917
  25. SOLU?MEDROL [Concomitant]
     Active Substance: METHYLPREDNISOLONE SODIUM SUCCINATE
     Indication: SUPPORTIVE CARE

REACTIONS (7)
  - Subileus [Recovered/Resolved]
  - Liver disorder [Unknown]
  - Bone marrow failure [Recovered/Resolved]
  - Disseminated intravascular coagulation [Recovered/Resolved]
  - Ammonia increased [Recovering/Resolving]
  - Bacterial sepsis [Recovered/Resolved]
  - Neutropenic colitis [Recovered/Resolved]

NARRATIVE: CASE EVENT DATE: 20170905
